FAERS Safety Report 10886800 (Version 1)
Quarter: 2015Q1

REPORT INFORMATION
  Report Type: Spontaneous
  Country: CH (occurrence: CH)
  Receive Date: 20150304
  Receipt Date: 20150304
  Transmission Date: 20150721
  Serious: Yes (Other)
  Sender: FDA-Public Use
  Company Number: PHHY2015CH024134

PATIENT
  Sex: Female

DRUGS (1)
  1. CLOPIN ECO [Suspect]
     Active Substance: CLOZAPINE
     Indication: PRODUCT USED FOR UNKNOWN INDICATION
     Dosage: 50 MG, QD
     Route: 065
     Dates: start: 20141016, end: 20141218

REACTIONS (5)
  - Eosinophilia [Recovered/Resolved]
  - Generalised oedema [Recovered/Resolved]
  - Hepatic enzyme increased [Recovered/Resolved]
  - Drug reaction with eosinophilia and systemic symptoms [Recovering/Resolving]
  - Skin reaction [Recovered/Resolved]

NARRATIVE: CASE EVENT DATE: 20141110
